FAERS Safety Report 4541563-5 (Version None)
Quarter: 2004Q4

REPORT INFORMATION
  Report Type: 
  Country: None (occurrence: None)
  Receive Date: 20041227
  Receipt Date: 20041213
  Transmission Date: 20050328
  Serious: Yes (Other)
  Sender: FDA-Public Use
  Company Number: 2004093743

PATIENT
  Age: 23 Year
  Sex: Female

DRUGS (2)
  1. DEPO-PROVERA [Suspect]
     Indication: CONTRACEPTION
     Dosage: 150 MG (150 MG, EVERY THREE MONTHS, 1ST INJECTION; SE IMAGE
     Dates: start: 20031001, end: 20031001
  2. DEPO-PROVERA [Suspect]
     Indication: CONTRACEPTION
     Dosage: 150 MG (150 MG, EVERY THREE MONTHS, 1ST INJECTION; SE IMAGE
     Dates: start: 20040722, end: 20040722

REACTIONS (3)
  - HYPOTHYROIDISM [None]
  - PYREXIA [None]
  - VAGINAL HAEMORRHAGE [None]
